FAERS Safety Report 18959030 (Version 1)
Quarter: 2021Q1

REPORT INFORMATION
  Report Type: Spontaneous
  Country: US (occurrence: US)
  Receive Date: 20210302
  Receipt Date: 20210302
  Transmission Date: 20210420
  Serious: Yes (Hospitalization)
  Sender: FDA-Public Use
  Company Number: US-AMERICAN REGENT INC-2021000459

PATIENT
  Age: 67 Year
  Sex: Male

DRUGS (4)
  1. FLUOROURACIL. [Concomitant]
     Active Substance: FLUOROURACIL
     Indication: RECTAL ADENOCARCINOMA
     Dosage: UNK
     Route: 065
  2. OXALIPLATIN INJECTION, USP (0517?1910?01) [Suspect]
     Active Substance: OXALIPLATIN
     Indication: RECTAL ADENOCARCINOMA
     Dosage: UNK, SECOND CYCLE OF TREATMENT
     Route: 065
  3. OXALIPLATIN INJECTION, USP (0517?1910?01) [Suspect]
     Active Substance: OXALIPLATIN
     Dosage: UNK, FIRST CYCLE OF TREATMENT
     Route: 065
  4. LEUCOVORIN CALCIUM INJECTION (0517?8605?25) [Concomitant]
     Active Substance: LEUCOVORIN CALCIUM
     Indication: RECTAL ADENOCARCINOMA
     Dosage: UNK
     Route: 065

REACTIONS (2)
  - Product use in unapproved indication [Recovered/Resolved]
  - Guillain-Barre syndrome [Recovered/Resolved]
